FAERS Safety Report 11623128 (Version 1)
Quarter: 2015Q4

REPORT INFORMATION
  Report Type: Spontaneous
  Country: US (occurrence: US)
  Receive Date: 20151013
  Receipt Date: 20151013
  Transmission Date: 20160304
  Serious: No
  Sender: FDA-Public Use
  Company Number: US-JNJFOC-20150907382

PATIENT
  Age: 67 Year
  Sex: Female
  Weight: 75.75 kg

DRUGS (1)
  1. TYLENOL EXTRA STRENGTH [Suspect]
     Active Substance: ACETAMINOPHEN
     Indication: MIGRAINE
     Dosage: 2 CAPLETS, EVERY 4 HOURS.
     Route: 048
     Dates: start: 20150905, end: 20150906

REACTIONS (7)
  - Dysgeusia [Recovered/Resolved]
  - Product lot number issue [Unknown]
  - Product use issue [Recovered/Resolved]
  - Product label issue [Unknown]
  - Product solubility abnormal [Unknown]
  - Product physical issue [Unknown]
  - Product taste abnormal [Unknown]

NARRATIVE: CASE EVENT DATE: 20150905
